FAERS Safety Report 16446831 (Version 10)
Quarter: 2020Q2

REPORT INFORMATION
  Report Type: Spontaneous
  Country: US (occurrence: US)
  Receive Date: 20190618
  Receipt Date: 20200605
  Transmission Date: 20200713
  Serious: Yes (Hospitalization, Other)
  Sender: FDA-Public Use
  Company Number: US-ACTELION-A-US2019-191172

PATIENT
  Age: 69 Year
  Sex: Male

DRUGS (5)
  1. HYDRALAZINE [Concomitant]
     Active Substance: HYDRALAZINE HYDROCHLORIDE
  2. TACROLIMUS. [Suspect]
     Active Substance: TACROLIMUS
     Indication: PRODUCT USED FOR UNKNOWN INDICATION
     Dosage: UNK
     Route: 065
  3. BUMEX [Concomitant]
     Active Substance: BUMETANIDE
  4. TRACLEER [Suspect]
     Active Substance: BOSENTAN
     Indication: PULMONARY HYPERTENSION
     Dosage: 62.5 MG, BID
     Route: 048
     Dates: start: 20190323
  5. TRACLEER [Suspect]
     Active Substance: BOSENTAN
     Indication: ESSENTIAL HYPERTENSION

REACTIONS (13)
  - Cough [Unknown]
  - Blindness unilateral [Not Recovered/Not Resolved]
  - Nasopharyngitis [Unknown]
  - Drug level decreased [Recovered/Resolved]
  - Constipation [Unknown]
  - Dyspnoea [Unknown]
  - Faeces hard [Unknown]
  - Peripheral swelling [Unknown]
  - Pulmonary hypertension [Unknown]
  - Oedema [Recovering/Resolving]
  - Fluid retention [Recovering/Resolving]
  - Abdominal distension [Unknown]
  - Drug ineffective [Unknown]

NARRATIVE: CASE EVENT DATE: 20190415
